FAERS Safety Report 7400966-1 (Version None)
Quarter: 2011Q2

REPORT INFORMATION
  Report Type: 
  Country: None (occurrence: None)
  Receive Date: 20110407
  Receipt Date: 20110331
  Transmission Date: 20111010
  Serious: Yes (Hospitalization)
  Sender: FDA-Public Use
  Company Number: FI-PFIZER INC-2011029587

PATIENT
  Age: 65 Year
  Sex: Male
  Weight: 84.5 kg

DRUGS (12)
  1. THYROXIN [Concomitant]
     Indication: HYPOTHYROIDISM
     Dosage: UNK
     Dates: start: 20090827
  2. SOMAC [Concomitant]
     Indication: DYSPEPSIA
     Dosage: UNK
     Dates: start: 20070914
  3. BISOPROLOL [Concomitant]
     Indication: HYPERTENSION
     Dosage: UNK
     Dates: start: 20080402
  4. VENTOLIN [Concomitant]
     Indication: CHRONIC OBSTRUCTIVE PULMONARY DISEASE
     Dosage: UNK
     Dates: start: 20101027
  5. SUNITINIB MALATE [Suspect]
     Dosage: 50 MG, 1X/DAY
     Route: 048
     Dates: start: 20110303
  6. APURIN [Concomitant]
     Indication: PROPHYLAXIS
     Dosage: UNK
     Route: 048
     Dates: start: 20091009
  7. LOPERAMIDE [Concomitant]
     Indication: DIARRHOEA
     Dosage: UNK
     Dates: start: 20080221
  8. SERETIDE EVOHALER [Concomitant]
     Indication: CHRONIC OBSTRUCTIVE PULMONARY DISEASE
     Dosage: UNK
     Dates: start: 20101027
  9. HYDREX [Concomitant]
     Indication: HYPERTENSION
     Dosage: UNK
     Dates: start: 20080515
  10. SPIRIVA [Concomitant]
     Indication: CHRONIC OBSTRUCTIVE PULMONARY DISEASE
     Dosage: UNK
     Dates: start: 20101027
  11. SUNITINIB MALATE [Suspect]
     Indication: METASTATIC RENAL CELL CARCINOMA
     Dosage: 50 MG, 1X/DAY
     Route: 048
     Dates: start: 20061012, end: 20110209
  12. CARDACE [Concomitant]
     Indication: HYPERTENSION
     Dosage: UNK
     Dates: start: 20070814

REACTIONS (1)
  - PNEUMONIA [None]
